FAERS Safety Report 5874478-0 (Version None)
Quarter: 2008Q3

REPORT INFORMATION
  Report Type: 
  Country: None (occurrence: None)
  Receive Date: 20080909
  Receipt Date: 20080530
  Transmission Date: 20090109
  Serious: Yes (Other)
  Sender: FDA-Public Use
  Company Number: PHBS2008JP05520

PATIENT
  Age: 41 Year
  Sex: Male

DRUGS (2)
  1. IMATINIB MESYLATE [Suspect]
     Indication: CHRONIC MYELOID LEUKAEMIA
     Dosage: 600 MG/DAY
     Route: 065
  2. IMATINIB MESYLATE [Suspect]
     Dosage: 300 TO 400 MG/DAY
     Route: 065

REACTIONS (6)
  - CHROMOSOME ANALYSIS ABNORMAL [None]
  - CORD BLOOD TRANSPLANT THERAPY [None]
  - DRUG INEFFECTIVE [None]
  - HAEMOGLOBIN DECREASED [None]
  - MYELODYSPLASTIC SYNDROME [None]
  - WHITE BLOOD CELL COUNT DECREASED [None]
